FAERS Safety Report 7206371-5 (Version None)
Quarter: 2011Q1

REPORT INFORMATION
  Report Type: 
  Country: None (occurrence: None)
  Receive Date: 20110103
  Receipt Date: 20110103
  Transmission Date: 20110831
  Serious: Yes (Hospitalization)
  Sender: FDA-Public Use
  Company Number: PHHO2008NL05334

PATIENT
  Sex: Male

DRUGS (5)
  1. SIMVASTATIN [Concomitant]
     Dosage: 20 MG / DAY
     Dates: start: 20080418, end: 20080426
  2. AFINITOR [Suspect]
     Dosage: DOUBLE BLIND
     Route: 048
     Dates: start: 20080416, end: 20080425
  3. AFINITOR [Suspect]
     Indication: CARCINOID TUMOUR
     Dosage: 10 MG, QD
     Route: 048
     Dates: start: 20080215
  4. SANDOSTATIN LAR [Suspect]
     Indication: CARCINOID TUMOUR
  5. AFINITOR [Suspect]
     Dosage: DOUBLE BLIND
     Route: 048
     Dates: start: 20080503

REACTIONS (4)
  - HYPOMAGNESAEMIA [None]
  - MUSCULAR WEAKNESS [None]
  - HYPERCHOLESTEROLAEMIA [None]
  - HYPOCALCAEMIA [None]
